FAERS Safety Report 7891364-5 (Version None)
Quarter: 2011Q4

REPORT INFORMATION
  Report Type: 
  Country: None (occurrence: None)
  Receive Date: 20111103
  Receipt Date: 20110802
  Transmission Date: 20120403
  Serious: No
  Sender: FDA-Public Use
  Company Number: US-AMGEN-USASP2011031972

PATIENT
  Age: 47 Year
  Sex: Female

DRUGS (1)
  1. ENBREL [Suspect]
     Indication: RHEUMATOID ARTHRITIS
     Dosage: 50 MG, QWK
     Dates: start: 20101001

REACTIONS (7)
  - NAUSEA [None]
  - BLOOD POTASSIUM DECREASED [None]
  - ASTHENIA [None]
  - INCREASED TENDENCY TO BRUISE [None]
  - JOINT SWELLING [None]
  - FATIGUE [None]
  - WHITE BLOOD CELL COUNT DECREASED [None]
